FAERS Safety Report 5389575-6 (Version None)
Quarter: 2007Q3

REPORT INFORMATION
  Report Type: 
  Country: None (occurrence: None)
  Receive Date: 20070717
  Receipt Date: 20070705
  Transmission Date: 20080115
  Serious: Yes (Other)
  Sender: FDA-Public Use
  Company Number: FR-PFIZER INC-2007055023

PATIENT
  Sex: Male
  Weight: 24 kg

DRUGS (1)
  1. ZITHROMAX [Suspect]
     Indication: PYREXIA
     Dates: start: 20070703, end: 20070701

REACTIONS (2)
  - ABDOMINAL PAIN UPPER [None]
  - APNOEA [None]
